FAERS Safety Report 18131131 (Version 1)
Quarter: 2020Q3

REPORT INFORMATION
  Report Type: Report from Study
  Country: BR (occurrence: BR)
  Receive Date: 20200810
  Receipt Date: 20200810
  Transmission Date: 20201103
  Serious: Yes (Life-Threatening, Hospitalization)
  Sender: FDA-Public Use
  Company Number: BR-SA-2020SA147996

PATIENT

DRUGS (5)
  1. DIPIRONE [Concomitant]
     Active Substance: METAMIZOLE SODIUM
     Indication: PRE-EXISTING DISEASE
     Dosage: 2000 MG, QID
     Route: 042
     Dates: start: 20200528, end: 20200605
  2. POTASSIUM PHOSPHATE [POTASSIUM PHOSPHATE DIBASIC] [Concomitant]
     Dosage: 20 ML, PRN
     Route: 042
     Dates: start: 20200531, end: 20200531
  3. AZITHROMYCIN ANHYDROUS. [Concomitant]
     Active Substance: AZITHROMYCIN ANHYDROUS
     Indication: PRE-EXISTING DISEASE
     Dosage: 500 MG, QD
     Route: 042
     Dates: start: 20200528
  4. SARILUMAB [Suspect]
     Active Substance: SARILUMAB
     Indication: COVID-19
     Dosage: 1 DF, 1X, 1 BAG, INFUSION RATE (ML/H):  100
     Route: 042
     Dates: start: 20200530, end: 20200530
  5. CLAVULIN [AMOXICILLIN SODIUM;CLAVULANATE POTASSIUM] [Concomitant]
     Active Substance: AMOXICILLIN\CLAVULANATE POTASSIUM
     Indication: PRE-EXISTING DISEASE
     Dosage: 2 G, TID
     Route: 042
     Dates: start: 20200528, end: 20200604

REACTIONS (1)
  - Pneumonia [Recovered/Resolved]

NARRATIVE: CASE EVENT DATE: 20200605
